FAERS Safety Report 25355207 (Version 1)
Quarter: 2025Q2

REPORT INFORMATION
  Report Type: Spontaneous
  Country: ES (occurrence: ES)
  Receive Date: 20250524
  Receipt Date: 20250524
  Transmission Date: 20250717
  Serious: Yes (Hospitalization, Other)
  Sender: CELLTRION
  Company Number: None

PATIENT

DRUGS (6)
  1. BEVACIZUMAB [Suspect]
     Active Substance: BEVACIZUMAB
     Indication: Glioblastoma
     Dosage: 1030 MG, EVERY 2 WEEK
     Route: 042
     Dates: start: 20241021, end: 20241021
  2. IRINOTECAN [Concomitant]
     Active Substance: IRINOTECAN
     Dosage: 286 MG, EVERY 2 WEEKS
     Route: 042
     Dates: start: 20241021
  3. GLIMEPIRIDE [Concomitant]
     Active Substance: GLIMEPIRIDE
     Route: 048
  4. MANIDIPINO CINFA [Concomitant]
     Route: 048
  5. RAMIPRIL CINFA [Concomitant]
     Route: 048
     Dates: start: 20210809
  6. VALPROIC ACID [Concomitant]
     Active Substance: VALPROIC ACID
     Route: 048
     Dates: start: 20120919

REACTIONS (2)
  - Ischaemic stroke [Recovering/Resolving]
  - Intentional product use issue [Unknown]

NARRATIVE: CASE EVENT DATE: 20241029
